FAERS Safety Report 14668817 (Version 5)
Quarter: 2023Q4

REPORT INFORMATION
  Report Type: Spontaneous
  Country: IT (occurrence: IT)
  Receive Date: 20180322
  Receipt Date: 20231210
  Transmission Date: 20240109
  Serious: Yes (Hospitalization, Other)
  Sender: FDA-Public Use
  Company Number: IT-AUROBINDO-AUR-APL-2014-08137

PATIENT
  Age: 86 Year
  Sex: Male

DRUGS (4)
  1. AMOXICILLIN\CLAVULANIC ACID [Suspect]
     Active Substance: AMOXICILLIN\CLAVULANIC ACID
     Indication: Bronchitis
     Dosage: 1 GRAM, TWO TIMES A DAY
     Route: 065
  2. AMOXICILLIN\CLAVULANIC ACID [Suspect]
     Active Substance: AMOXICILLIN\CLAVULANIC ACID
     Indication: Lymphoedema
     Dosage: UNK, UNKNOWN FREQ.
     Route: 065
  3. ATORVASTATIN [Suspect]
     Active Substance: ATORVASTATIN
     Indication: Coronary artery disease
     Dosage: 10 MILLIGRAM, ONCE A DAY (SINCE 6 YEARS)
     Route: 048
  4. ATORVASTATIN [Suspect]
     Active Substance: ATORVASTATIN
     Dosage: 10 MILLIGRAM, ONCE A DAY
     Route: 065

REACTIONS (10)
  - Rhabdomyolysis [Recovering/Resolving]
  - Hepatitis cholestatic [Unknown]
  - Jaundice [Recovering/Resolving]
  - Movement disorder [Recovering/Resolving]
  - Drug interaction [Recovering/Resolving]
  - Muscular weakness [Recovering/Resolving]
  - Asthenia [Recovered/Resolved]
  - Chromaturia [Recovering/Resolving]
  - Malaise [Recovering/Resolving]
  - Gait disturbance [Recovered/Resolved]
